FAERS Safety Report 4803848-4 (Version None)
Quarter: 2005Q4

REPORT INFORMATION
  Report Type: 
  Country: None (occurrence: None)
  Receive Date: 20051014
  Receipt Date: 20050927
  Transmission Date: 20060501
  Serious: Yes (Hospitalization, Other)
  Sender: FDA-Public Use
  Company Number: 2005133895

PATIENT
  Age: 55 Year
  Sex: Female

DRUGS (9)
  1. CELEBREX [Suspect]
     Indication: RHEUMATOID ARTHRITIS
     Dosage: 400 MG (, 1 D),
     Dates: start: 20020615, end: 20050227
  2. ETANERCEPT (ETANERCEPT) [Suspect]
     Indication: RHEUMATOID ARTHRITIS
     Dosage: (, 1 WK), SUBCUTANEOUS
     Route: 058
     Dates: start: 20040531, end: 20050227
  3. PROPRANOLOL [Concomitant]
  4. PREDNISONE [Concomitant]
  5. MEDIATENSYL (URAPIDIL) [Concomitant]
  6. METHOTREXATE [Concomitant]
  7. OROCAL VITAMIN D            (CALCIUM CARBONATE, COLECALCIFEROL) [Concomitant]
  8. SPECIAFOLDINE              (FOLIC ACID) [Concomitant]
  9. RISEDRONATE (RISEDRONIC ACID) [Concomitant]

REACTIONS (2)
  - DYSPNOEA EXERTIONAL [None]
  - MYOCARDIAL INFARCTION [None]
